FAERS Safety Report 13592450 (Version 2)
Quarter: 2017Q3

REPORT INFORMATION
  Report Type: Report from Study
  Country: None (occurrence: GB)
  Receive Date: 20170530
  Receipt Date: 20170710
  Transmission Date: 20171127
  Serious: Yes (Other)
  Sender: FDA-Public Use
  Company Number: GB-ABBVIE-17K-167-1989931-00

PATIENT
  Age: 20 Year
  Sex: Female

DRUGS (1)
  1. HUMIRA [Suspect]
     Active Substance: ADALIMUMAB
     Indication: COLITIS ULCERATIVE
     Route: 058

REACTIONS (14)
  - Swelling face [Unknown]
  - Skin burning sensation [Unknown]
  - Fatigue [Unknown]
  - Drug administration error [Unknown]
  - Loss of consciousness [Recovered/Resolved]
  - Eye swelling [Recovering/Resolving]
  - Product lot number issue [Unknown]
  - Hypersomnia [Unknown]
  - Urticaria [Unknown]
  - Injection site swelling [Unknown]
  - Toxicity to various agents [Unknown]
  - Pain [Unknown]
  - Malaise [Not Recovered/Not Resolved]
  - Injection site pain [Recovered/Resolved]

NARRATIVE: CASE EVENT DATE: 20170519
